FAERS Safety Report 19881166 (Version 2)
Quarter: 2021Q4

REPORT INFORMATION
  Report Type: Report from Study
  Country: US (occurrence: US)
  Receive Date: 20210925
  Receipt Date: 20211219
  Transmission Date: 20220304
  Serious: No
  Sender: FDA-Public Use
  Company Number: US-NOVARTISTESTPH-NVSC2021US217948

PATIENT
  Sex: Female

DRUGS (1)
  1. COSENTYX [Suspect]
     Active Substance: SECUKINUMAB
     Indication: Prostatic specific antigen
     Dosage: QMO, BENEATH THE SKIN, USUALLY VIA INJECTION
     Route: 058

REACTIONS (2)
  - Arthralgia [Unknown]
  - Pain in extremity [Unknown]
